FAERS Safety Report 9095723 (Version 2)
Quarter: 2013Q1

REPORT INFORMATION
  Report Type: Spontaneous
  Country: US (occurrence: US)
  Receive Date: 20130219
  Receipt Date: 20130304
  Transmission Date: 20140127
  Serious: Yes (Other)
  Sender: FDA-Public Use
  Company Number: US-FRI-1000042616

PATIENT
  Sex: Male

DRUGS (10)
  1. DALIRESP [Suspect]
     Indication: CHRONIC OBSTRUCTIVE PULMONARY DISEASE
     Dosage: 500 MCG
     Route: 048
     Dates: start: 20121011, end: 20121012
  2. ALBUTEROL [Concomitant]
     Route: 055
  3. MONTELUKAST [Concomitant]
     Dosage: 10 MG
  4. FLUCONAZOLE [Concomitant]
     Dosage: 100 MG
     Route: 048
  5. AUGMENTIN [Concomitant]
     Dosage: 1750/250
  6. SPIRIVA [Concomitant]
     Dosage: 1 DOSAGE FORM
     Route: 048
  7. BENZONATATE [Concomitant]
  8. AVELOX [Concomitant]
     Dosage: 400 MG
     Route: 048
  9. PREDNISONE [Concomitant]
     Dosage: 10 MG - TAPER DOSE
  10. ADVAIR [Concomitant]
     Dosage: 500/100

REACTIONS (2)
  - Pain in extremity [Recovered/Resolved]
  - Back pain [Recovered/Resolved]
